FAERS Safety Report 22332382 (Version 1)
Quarter: 2023Q2

REPORT INFORMATION
  Report Type: Report from Study
  Country: NL (occurrence: NL)
  Receive Date: 20230517
  Receipt Date: 20230517
  Transmission Date: 20230721
  Serious: Yes (Other)
  Sender: FDA-Public Use
  Company Number: NL-MYLANLABS-2023M1050429

PATIENT
  Age: 57 Year
  Sex: Male
  Weight: 85 kg

DRUGS (3)
  1. LOPINAVIR\RITONAVIR [Interacting]
     Active Substance: LOPINAVIR\RITONAVIR
     Indication: COVID-19
     Dosage: UNK, BID (NASOGASTRIC)
     Route: 065
  2. CHLOROQUINE [Interacting]
     Active Substance: CHLOROQUINE
     Indication: COVID-19
     Dosage: 600 MILLIGRAM, (LOADING DOSE) (NASOGASTRIC)
     Route: 065
  3. CHLOROQUINE [Interacting]
     Active Substance: CHLOROQUINE
     Dosage: 300 MILLIGRAM, BID (NASOGASTRIC)
     Route: 065

REACTIONS (3)
  - Drug interaction [Unknown]
  - Drug level increased [Unknown]
  - Off label use [Unknown]
